FAERS Safety Report 4818412-0 (Version None)
Quarter: 2005Q4

REPORT INFORMATION
  Report Type: 
  Country: None (occurrence: None)
  Receive Date: 20051031
  Receipt Date: 20051021
  Transmission Date: 20060501
  Serious: Yes (Hospitalization)
  Sender: FDA-Public Use
  Company Number: TPA2005A01307

PATIENT
  Age: 74 Year
  Sex: Female
  Weight: 77.1115 kg

DRUGS (2)
  1. ACTOS [Suspect]
     Indication: DIABETES MELLITUS NON-INSULIN-DEPENDENT
     Dosage: 30 MG, 1 IN 1 D, PER ORAL
     Route: 048
     Dates: start: 20050921
  2. AMARYL [Suspect]
     Indication: DIABETES MELLITUS
     Dosage: 4 MG, 1 IN 1 D, PER ORAL
     Route: 048
     Dates: start: 20010101

REACTIONS (3)
  - FALL [None]
  - MALAISE [None]
  - SYNCOPE [None]
